FAERS Safety Report 20893367 (Version 5)
Quarter: 2025Q2

REPORT INFORMATION
  Report Type: Spontaneous
  Country: IT (occurrence: IT)
  Receive Date: 20220531
  Receipt Date: 20250531
  Transmission Date: 20250716
  Serious: Yes (Life-Threatening, Hospitalization, Other)
  Sender: AUROBINDO
  Company Number: IT-002147023-NVSC2022IT109436

PATIENT
  Age: 61 Year
  Sex: Male

DRUGS (5)
  1. BORTEZOMIB [Suspect]
     Active Substance: BORTEZOMIB
     Indication: Cardiac amyloidosis
     Route: 065
  2. BORTEZOMIB [Suspect]
     Active Substance: BORTEZOMIB
     Indication: Plasma cell myeloma
  3. EPINEPHRINE [Suspect]
     Active Substance: EPINEPHRINE
     Indication: Cardiogenic shock
     Route: 065
  4. NOREPINEPHRINE [Suspect]
     Active Substance: NOREPINEPHRINE
     Indication: Cardiogenic shock
     Route: 065
  5. NOREPINEPHRINE [Suspect]
     Active Substance: NOREPINEPHRINE
     Route: 065

REACTIONS (17)
  - Cardiogenic shock [Recovered/Resolved]
  - Pulmonary oedema [Recovered/Resolved]
  - Drug ineffective [Unknown]
  - Systolic dysfunction [Recovered/Resolved]
  - Anuria [Recovered/Resolved]
  - Hepatic failure [Recovered/Resolved]
  - Dyspnoea [Recovered/Resolved]
  - Hypoperfusion [Recovered/Resolved]
  - Metabolic acidosis [Recovered/Resolved]
  - Sinus tachycardia [Recovered/Resolved]
  - Pulmonary arterial pressure increased [Recovered/Resolved]
  - Diastolic dysfunction [Recovered/Resolved]
  - Renal failure [Recovered/Resolved]
  - Hypotension [Recovered/Resolved]
  - Supraventricular tachyarrhythmia [Recovered/Resolved]
  - Mitral valve incompetence [Recovered/Resolved]
  - Haemodynamic instability [Recovered/Resolved]
